FAERS Safety Report 5665294-3 (Version None)
Quarter: 2008Q1

REPORT INFORMATION
  Report Type: 
  Country: None (occurrence: None)
  Receive Date: 20080314
  Receipt Date: 20080219
  Transmission Date: 20080703
  Serious: No
  Sender: FDA-Public Use
  Company Number: US-ABBOTT-07P-163-0427319-00

PATIENT
  Sex: Female
  Weight: 69.008 kg

DRUGS (9)
  1. HUMIRA [Suspect]
     Indication: CROHN'S DISEASE
     Route: 058
     Dates: start: 20070901, end: 20071201
  2. HUMIRA [Suspect]
     Route: 058
     Dates: start: 20080101, end: 20080201
  3. ADVAIR 250/50 DISKUS [Concomitant]
     Indication: ASTHMA
     Route: 055
     Dates: start: 20070101
  4. GABAPENTIN [Concomitant]
     Indication: MIGRAINE
     Route: 048
     Dates: start: 20070601
  5. PREDNISONE TAB [Concomitant]
     Indication: CROHN'S DISEASE
     Dosage: 50MG DAILY THEN DECREASE 10MG EVERY WEEK IF BAD FLARE-UP
     Route: 048
  6. ALBUTEROL [Concomitant]
     Indication: ASTHMA
     Route: 055
     Dates: start: 20040101
  7. CALCIUM [Concomitant]
     Indication: BLOOD CALCIUM DECREASED
     Route: 048
  8. VICODIN [Concomitant]
     Indication: PAIN
     Route: 048
  9. VICODIN [Concomitant]
     Indication: CROHN'S DISEASE

REACTIONS (7)
  - CUTANEOUS LUPUS ERYTHEMATOSUS [None]
  - EYE PRURITUS [None]
  - INJECTION SITE DISCOLOURATION [None]
  - INJECTION SITE ERYTHEMA [None]
  - INJECTION SITE RASH [None]
  - INJECTION SITE WARMTH [None]
  - SKIN LESION [None]
